FAERS Safety Report 12693982 (Version 1)
Quarter: 2016Q3

REPORT INFORMATION
  Report Type: Spontaneous
  Country: US (occurrence: US)
  Receive Date: 20160829
  Receipt Date: 20160829
  Transmission Date: 20161109
  Serious: No
  Sender: FDA-Public Use
  Company Number: US-PFIZER INC-2016400633

PATIENT
  Age: 67 Year
  Sex: Female

DRUGS (4)
  1. LYRICA [Suspect]
     Active Substance: PREGABALIN
     Indication: FIBROMYALGIA
     Dosage: 250 MG, UNK
     Dates: start: 2009
  2. LYRICA [Suspect]
     Active Substance: PREGABALIN
     Dosage: 100 MG, 2X/DAY (100MG ONE IN THE MORNING AND ONE AT NIGHT)
     Route: 048
     Dates: start: 2016, end: 201608
  3. LYRICA [Suspect]
     Active Substance: PREGABALIN
     Dosage: 300 UNK, UNK
  4. LYRICA [Suspect]
     Active Substance: PREGABALIN
     Dosage: 300 MG, 2X/DAY

REACTIONS (17)
  - Product physical issue [Unknown]
  - Poor quality drug administered [Unknown]
  - Prescribed overdose [Unknown]
  - Visual impairment [Recovered/Resolved]
  - Abdominal discomfort [Recovered/Resolved]
  - Hypoaesthesia [Recovered/Resolved]
  - Malaise [Recovered/Resolved]
  - Somnolence [Unknown]
  - Fall [Recovered/Resolved with Sequelae]
  - Balance disorder [Recovered/Resolved]
  - Spinal pain [Recovered/Resolved]
  - Bedridden [Recovered/Resolved]
  - Weight abnormal [Unknown]
  - Dizziness [Recovered/Resolved]
  - Tremor [Recovered/Resolved]
  - Headache [Recovered/Resolved]
  - Nausea [Recovered/Resolved]

NARRATIVE: CASE EVENT DATE: 201608
